FAERS Safety Report 19958721 (Version 1)
Quarter: 2021Q4

REPORT INFORMATION
  Report Type: Spontaneous
  Country: IT (occurrence: IT)
  Receive Date: 20211015
  Receipt Date: 20211015
  Transmission Date: 20220303
  Serious: Yes (Other)
  Sender: FDA-Public Use
  Company Number: IT-JNJFOC-20210945299

PATIENT
  Age: 28 Year
  Sex: Male
  Weight: 60 kg

DRUGS (4)
  1. LORAZEPAM [Suspect]
     Active Substance: LORAZEPAM
     Dosage: 20 COATED TABLETS, 1.5 BLISTER
     Route: 048
     Dates: start: 20210921
  2. HALDOL [Suspect]
     Active Substance: HALOPERIDOL
     Dosage: 1 BLISTER, 30 TABLETS
     Route: 048
     Dates: start: 20210921
  3. MIANSERIN HYDROCHLORIDE [Suspect]
     Active Substance: MIANSERIN HYDROCHLORIDE
     Dosage: 3 EMPTY BLISTER
     Route: 048
     Dates: start: 20210921
  4. OLANZAPINE [Suspect]
     Active Substance: OLANZAPINE
     Dosage: 28 TABLETS, 1 BLISTER
     Route: 048
     Dates: start: 20210921

REACTIONS (3)
  - Intentional self-injury [Unknown]
  - Sopor [Unknown]
  - Intentional product misuse [Unknown]

NARRATIVE: CASE EVENT DATE: 20210921
